FAERS Safety Report 4271683-4 (Version None)
Quarter: 2004Q1

REPORT INFORMATION
  Report Type: 
  Country: None (occurrence: None)
  Receive Date: 20040113
  Receipt Date: 20040102
  Transmission Date: 20041129
  Serious: Yes (Death)
  Sender: FDA-Public Use
  Company Number: MK200401-0061-1

PATIENT
  Age: 65 Year
  Sex: Female
  Weight: 58 kg

DRUGS (17)
  1. OPTIRAY 320 [Suspect]
     Indication: COMPUTERISED TOMOGRAM
     Dosage: 95 ML, SINGLE USE
     Dates: start: 20031227, end: 20031227
  2. DECORTIN [Concomitant]
  3. DIAZEPAM [Concomitant]
  4. CLEXANE [Concomitant]
  5. INSULIN [Concomitant]
  6. OXIS [Concomitant]
  7. PULMICORT [Concomitant]
  8. BRONCHORETARD [Concomitant]
  9. SODIUM BICARBONATE IN PLASTIC CONTAINER [Concomitant]
  10. LASIX [Concomitant]
  11. AUGMENTIN ORAL [Concomitant]
  12. MERONEM [Concomitant]
  13. RULID [Concomitant]
  14. NOREPINEPHRINE BITARTRATE [Concomitant]
  15. PROPOFOL [Concomitant]
  16. DOPAMINE HCL [Concomitant]
  17. MORPHINE [Concomitant]

REACTIONS (4)
  - COMA HEPATIC [None]
  - HEPATIC FAILURE [None]
  - MULTI-ORGAN FAILURE [None]
  - PULMONARY EMBOLISM [None]
